FAERS Safety Report 11912061 (Version 1)
Quarter: 2016Q1

REPORT INFORMATION
  Report Type: Spontaneous
  Country: LK (occurrence: LK)
  Receive Date: 20160112
  Receipt Date: 20160112
  Transmission Date: 20160526
  Serious: Yes (Other)
  Sender: FDA-Public Use
  Company Number: LK-MYLANLABS-2016M1001141

PATIENT

DRUGS (1)
  1. WARFARIN [Suspect]
     Active Substance: WARFARIN
     Indication: CARDIAC ANEURYSM
     Route: 065

REACTIONS (2)
  - Haemosiderosis [Recovering/Resolving]
  - Cerebral disorder [Recovering/Resolving]
